FAERS Safety Report 25437898 (Version 1)
Quarter: 2025Q2

REPORT INFORMATION
  Report Type: Spontaneous
  Country: FR (occurrence: FR)
  Receive Date: 20250616
  Receipt Date: 20250616
  Transmission Date: 20250716
  Serious: Yes (Hospitalization, Other)
  Sender: CELLTRION
  Company Number: FR-AMGEN-FRASP2025002316

PATIENT

DRUGS (7)
  1. ADALIMUMAB [Suspect]
     Active Substance: ADALIMUMAB
     Indication: Colitis ulcerative
     Route: 065
  2. GOLIMUMAB [Concomitant]
     Active Substance: GOLIMUMAB
     Indication: Colitis ulcerative
  3. CERTOLIZUMAB [Concomitant]
     Active Substance: CERTOLIZUMAB
     Indication: Colitis ulcerative
  4. VEDOLIZUMAB [Concomitant]
     Active Substance: VEDOLIZUMAB
     Indication: Colitis ulcerative
  5. TOFACITINIB CITRATE [Concomitant]
     Active Substance: TOFACITINIB CITRATE
     Indication: Colitis ulcerative
  6. FILGOTINIB [Concomitant]
     Active Substance: FILGOTINIB
     Indication: Colitis ulcerative
  7. UPADACITINIB [Concomitant]
     Active Substance: UPADACITINIB
     Indication: Colitis ulcerative

REACTIONS (3)
  - Anal incontinence [Unknown]
  - Colitis ulcerative [Unknown]
  - Therapy non-responder [Unknown]
